FAERS Safety Report 8230007-8 (Version None)
Quarter: 2012Q1

REPORT INFORMATION
  Report Type: 
  Country: None (occurrence: None)
  Receive Date: 20120323
  Receipt Date: 20120314
  Transmission Date: 20120608
  Serious: Yes (Hospitalization)
  Sender: FDA-Public Use
  Company Number: US-BIOGENIDEC-2012BI006121

PATIENT
  Age: 37 Year
  Sex: Female

DRUGS (1)
  1. AVONEX [Suspect]
     Indication: MULTIPLE SCLEROSIS
     Route: 030
     Dates: start: 20111229

REACTIONS (7)
  - INCONTINENCE [None]
  - CONVULSION [None]
  - PAIN [None]
  - STRESS [None]
  - COGNITIVE DISORDER [None]
  - APPARENT DEATH [None]
  - VISUAL ACUITY REDUCED [None]
